FAERS Safety Report 26085714 (Version 2)
Quarter: 2025Q4

REPORT INFORMATION
  Report Type: Report from Study
  Country: US (occurrence: US)
  Receive Date: 20251125
  Receipt Date: 20251218
  Transmission Date: 20260117
  Serious: Yes (Hospitalization, Other)
  Sender: GILEAD
  Company Number: US-GILEAD-2025-0737615

PATIENT
  Sex: Female

DRUGS (1)
  1. AZTREONAM LYSINE [Suspect]
     Active Substance: AZTREONAM LYSINE
     Indication: Cystic fibrosis
     Dosage: INHALE 75 MG 3 TIMES A DAY AT LEAST 4 HOURS APART. CYCLE 28 DAYS ON, THEN OFF FOR 28 DAYS.
     Route: 055

REACTIONS (3)
  - Cystic fibrosis [Unknown]
  - Unevaluable event [Unknown]
  - Infection [Unknown]
